FAERS Safety Report 5772032-2 (Version None)
Quarter: 2008Q2

REPORT INFORMATION
  Report Type: 
  Country: None (occurrence: None)
  Receive Date: 20080612
  Receipt Date: 20080612
  Transmission Date: 20081010
  Serious: Yes (Other)
  Sender: FDA-Public Use
  Company Number: None

PATIENT
  Sex: Female
  Weight: 109.3169 kg

DRUGS (2)
  1. CYMBALTA [Suspect]
     Indication: DEPRESSION
     Dosage: 60 MG DAILY PO
     Route: 048
     Dates: start: 20061001, end: 20070505
  2. CYMBALTA [Suspect]
     Indication: NEURALGIA
     Dosage: 60 MG DAILY PO
     Route: 048
     Dates: start: 20061001, end: 20070505

REACTIONS (9)
  - CONVULSION [None]
  - DIARRHOEA [None]
  - FATIGUE [None]
  - HEADACHE [None]
  - HOT FLUSH [None]
  - IRRITABILITY [None]
  - LOSS OF LIBIDO [None]
  - NIGHTMARE [None]
  - WEIGHT INCREASED [None]
